FAERS Safety Report 24531982 (Version 2)
Quarter: 2024Q4

REPORT INFORMATION
  Report Type: Spontaneous
  Country: SK (occurrence: SK)
  Receive Date: 20241022
  Receipt Date: 20241115
  Transmission Date: 20250115
  Serious: Yes (Death, Other)
  Sender: ALEXION PHARMACEUTICALS
  Company Number: SK-AstraZeneca-CH-00726473A

PATIENT
  Age: 75 Year

DRUGS (12)
  1. ONDEXXYA [Suspect]
     Active Substance: ANDEXANET ALFA
     Route: 065
  2. ONDEXXYA [Suspect]
     Active Substance: ANDEXANET ALFA
  3. ONDEXXYA [Suspect]
     Active Substance: ANDEXANET ALFA
     Route: 065
  4. ONDEXXYA [Suspect]
     Active Substance: ANDEXANET ALFA
  5. Xanirva [Concomitant]
  6. FUROSEMIDE [Concomitant]
     Active Substance: FUROSEMIDE
  7. METOPROLOL SUCCINATE [Concomitant]
     Active Substance: METOPROLOL SUCCINATE
  8. TELMISARTAN [Concomitant]
     Active Substance: TELMISARTAN
  9. OLTAR [Concomitant]
  10. METFORMIN HYDROCHLORIDE [Concomitant]
     Active Substance: METFORMIN HYDROCHLORIDE
  11. ATORVASTATIN CALCIUM [Concomitant]
     Active Substance: ATORVASTATIN CALCIUM
  12. JARDIANCE [Concomitant]
     Active Substance: EMPAGLIFLOZIN

REACTIONS (6)
  - Death [Fatal]
  - Epilepsy [Unknown]
  - Cerebral haemorrhage [Unknown]
  - Hydrocephalus [Unknown]
  - Respiratory tract infection [Unknown]
  - Subdural haematoma [Unknown]
